FAERS Safety Report 6830643-7 (Version None)
Quarter: 2010Q3

REPORT INFORMATION
  Report Type: 
  Country: None (occurrence: None)
  Receive Date: 20100709
  Receipt Date: 20100709
  Transmission Date: 20110219
  Serious: Yes (Other)
  Sender: FDA-Public Use
  Company Number: None

PATIENT
  Age: 57 Year
  Sex: Female
  Weight: 58.9676 kg

DRUGS (1)
  1. NITROFURANTOIN [Suspect]
     Indication: URINARY TRACT INFECTION
     Dosage: 100MG BID PO ; OCCURED AFTER USE
     Route: 048
     Dates: start: 20100612, end: 20100615

REACTIONS (3)
  - DYSPNOEA [None]
  - PALPITATIONS [None]
  - PNEUMONITIS [None]
